FAERS Safety Report 8086109-2 (Version None)
Quarter: 2012Q1

REPORT INFORMATION
  Report Type: 
  Country: None (occurrence: None)
  Receive Date: 20120128
  Receipt Date: 20110420
  Transmission Date: 20120608
  Serious: No
  Sender: FDA-Public Use
  Company Number: US-ABBOTT-11P-163-0720624-00

PATIENT
  Sex: Female
  Weight: 56.296 kg

DRUGS (2)
  1. HUMIRA [Suspect]
     Indication: RHEUMATOID ARTHRITIS
     Dates: start: 20090101, end: 20100101
  2. HUMIRA [Suspect]
     Dates: start: 20100101

REACTIONS (3)
  - HEPATITIS A [None]
  - ABDOMINAL PAIN [None]
  - OEDEMA PERIPHERAL [None]
